FAERS Safety Report 20759723 (Version 3)
Quarter: 2023Q2

REPORT INFORMATION
  Report Type: Spontaneous
  Country: PT (occurrence: PT)
  Receive Date: 20220427
  Receipt Date: 20230623
  Transmission Date: 20230722
  Serious: Yes (Death, Other)
  Sender: FDA-Public Use
  Company Number: None

PATIENT

DRUGS (134)
  1. PROPRANOLOL [Suspect]
     Active Substance: PROPRANOLOL HYDROCHLORIDE
     Indication: Product used for unknown indication
     Dosage: UNK
     Route: 065
  2. PROPRANOLOL [Suspect]
     Active Substance: PROPRANOLOL HYDROCHLORIDE
     Dosage: UNK
     Route: 065
  3. DOMPERIDONE [Suspect]
     Active Substance: DOMPERIDONE
     Indication: Product used for unknown indication
     Dosage: UNK
     Route: 065
  4. DOMPERIDONE [Suspect]
     Active Substance: DOMPERIDONE
     Dosage: UNK
     Route: 065
  5. ASPIRIN [Suspect]
     Active Substance: ASPIRIN
     Indication: Product used for unknown indication
     Dosage: 100 MG, UNK
     Route: 065
  6. ASPIRIN [Suspect]
     Active Substance: ASPIRIN
     Dosage: 100 MILLIGRAM
     Route: 065
  7. IMATINIB [Suspect]
     Active Substance: IMATINIB
     Indication: Product used for unknown indication
     Dosage: UNK
     Route: 065
  8. IMATINIB [Suspect]
     Active Substance: IMATINIB
     Route: 065
  9. HUMAN IMMUNOGLOBULIN G [Suspect]
     Active Substance: HUMAN IMMUNOGLOBULIN G
     Indication: Product used for unknown indication
     Dosage: UNK
     Route: 065
  10. HUMAN IMMUNOGLOBULIN G [Suspect]
     Active Substance: HUMAN IMMUNOGLOBULIN G
     Dosage: UNK
     Route: 065
  11. TELMISARTAN [Suspect]
     Active Substance: TELMISARTAN
     Indication: Product used for unknown indication
     Dosage: UNK
     Route: 065
  12. TELMISARTAN [Suspect]
     Active Substance: TELMISARTAN
     Route: 065
  13. TOCILIZUMAB [Suspect]
     Active Substance: TOCILIZUMAB
     Indication: Product used for unknown indication
     Dosage: UNK
     Route: 065
  14. TOCILIZUMAB [Suspect]
     Active Substance: TOCILIZUMAB
     Route: 065
  15. FENOFIBRATE [Suspect]
     Active Substance: FENOFIBRATE
     Indication: Product used for unknown indication
     Dosage: UNK
     Route: 065
  16. FENOFIBRATE [Suspect]
     Active Substance: FENOFIBRATE
     Route: 065
  17. DONEPEZIL [Suspect]
     Active Substance: DONEPEZIL
     Indication: Product used for unknown indication
     Dosage: 5 MG, UNK
     Route: 065
  18. DONEPEZIL [Suspect]
     Active Substance: DONEPEZIL
     Dosage: 5 MILLIGRAM
     Route: 065
  19. GLUCOSAMINE [Suspect]
     Active Substance: GLUCOSAMINE
     Indication: Product used for unknown indication
     Dosage: 1500 MG, UNK
     Route: 065
  20. GLUCOSAMINE [Suspect]
     Active Substance: GLUCOSAMINE
     Dosage: 1500 MILLIGRAM
     Route: 065
  21. BRINZOLAMIDE [Suspect]
     Active Substance: BRINZOLAMIDE
     Indication: Product used for unknown indication
     Dosage: UNK
     Route: 065
  22. BRINZOLAMIDE [Suspect]
     Active Substance: BRINZOLAMIDE
     Route: 065
  23. ACECLOFENAC [Suspect]
     Active Substance: ACECLOFENAC
     Indication: Product used for unknown indication
     Dosage: 100 MG, UNK
     Route: 065
  24. ACECLOFENAC [Suspect]
     Active Substance: ACECLOFENAC
     Dosage: 100 MILLIGRAM
     Route: 065
  25. ESCHERICHIA COLI [Suspect]
     Active Substance: ESCHERICHIA COLI
     Indication: Product used for unknown indication
     Dosage: UNK
     Route: 065
  26. ESCHERICHIA COLI [Suspect]
     Active Substance: ESCHERICHIA COLI
     Route: 065
  27. ALISKIREN [Suspect]
     Active Substance: ALISKIREN
     Indication: Product used for unknown indication
     Dosage: UNK
     Route: 065
  28. ALISKIREN [Suspect]
     Active Substance: ALISKIREN
     Route: 065
  29. VORTIOXETINE [Interacting]
     Active Substance: VORTIOXETINE
     Indication: Product used for unknown indication
     Dosage: UNK
     Route: 065
  30. VORTIOXETINE [Interacting]
     Active Substance: VORTIOXETINE
     Route: 065
  31. EXEMESTANE [Suspect]
     Active Substance: EXEMESTANE
     Indication: Product used for unknown indication
     Dosage: UNK
     Route: 065
  32. EXEMESTANE [Suspect]
     Active Substance: EXEMESTANE
     Route: 065
  33. BISOPROLOL [Suspect]
     Active Substance: BISOPROLOL
     Indication: Product used for unknown indication
     Dosage: UNK
     Route: 065
  34. BISOPROLOL [Suspect]
     Active Substance: BISOPROLOL
     Route: 065
  35. ENOXAPARIN [Suspect]
     Active Substance: ENOXAPARIN
     Indication: Product used for unknown indication
     Dosage: UNK
     Route: 065
  36. ENOXAPARIN [Suspect]
     Active Substance: ENOXAPARIN
     Route: 065
  37. PENTAZOCINE [Suspect]
     Active Substance: PENTAZOCINE
     Indication: Product used for unknown indication
     Dosage: 100 MG, UNK
     Route: 065
  38. PENTAZOCINE [Suspect]
     Active Substance: PENTAZOCINE
     Dosage: 100 MILLIGRAM
     Route: 065
  39. GINKGO [Suspect]
     Active Substance: GINKGO
     Indication: Product used for unknown indication
     Dosage: UNK
     Route: 065
  40. GINKGO [Suspect]
     Active Substance: GINKGO
     Dosage: UNK
     Route: 065
  41. CODEINE [Suspect]
     Active Substance: CODEINE
     Indication: Product used for unknown indication
     Dosage: UNK
     Route: 065
  42. CODEINE [Suspect]
     Active Substance: CODEINE
     Route: 065
  43. MYCOPHENOLIC ACID [Suspect]
     Active Substance: MYCOPHENOLIC ACID
     Indication: Product used for unknown indication
     Dosage: UNK
     Route: 065
  44. MYCOPHENOLIC ACID [Suspect]
     Active Substance: MYCOPHENOLIC ACID
     Route: 065
  45. ACETAMINOPHEN [Suspect]
     Active Substance: ACETAMINOPHEN
     Indication: Product used for unknown indication
     Dosage: UNK
     Route: 065
  46. ACETAMINOPHEN [Suspect]
     Active Substance: ACETAMINOPHEN
     Route: 065
  47. IBANDRONIC ACID [Suspect]
     Active Substance: IBANDRONIC ACID
     Indication: Product used for unknown indication
     Dosage: UNK
     Route: 065
  48. IBANDRONIC ACID [Suspect]
     Active Substance: IBANDRONIC ACID
     Route: 065
  49. NIMESULIDE [Suspect]
     Active Substance: NIMESULIDE
     Indication: Product used for unknown indication
     Dosage: UNK
     Route: 065
  50. NIMESULIDE [Suspect]
     Active Substance: NIMESULIDE
     Route: 065
  51. VENLAFAXINE HYDROCHLORIDE [Suspect]
     Active Substance: VENLAFAXINE HYDROCHLORIDE
     Indication: Product used for unknown indication
     Dosage: UNK
     Route: 065
  52. VENLAFAXINE HYDROCHLORIDE [Suspect]
     Active Substance: VENLAFAXINE HYDROCHLORIDE
     Dosage: UNK
     Route: 065
  53. ATORVASTATIN [Suspect]
     Active Substance: ATORVASTATIN
     Indication: Product used for unknown indication
     Dosage: UNK
     Route: 065
  54. ATORVASTATIN [Suspect]
     Active Substance: ATORVASTATIN
     Route: 065
  55. NILOTINIB [Suspect]
     Active Substance: NILOTINIB
     Indication: Product used for unknown indication
     Dosage: UNK
     Route: 065
  56. NILOTINIB [Suspect]
     Active Substance: NILOTINIB
     Route: 065
  57. BUPRENORPHINE [Interacting]
     Active Substance: BUPRENORPHINE
     Indication: Product used for unknown indication
     Dosage: 35 G, Q1HR
     Route: 062
  58. BUPRENORPHINE [Interacting]
     Active Substance: BUPRENORPHINE
     Dosage: 35 GRAM, Q1HR
     Route: 062
  59. PREGABALIN [Suspect]
     Active Substance: PREGABALIN
     Indication: Product used for unknown indication
     Dosage: 50 MG, UNK
     Route: 065
  60. PREGABALIN [Suspect]
     Active Substance: PREGABALIN
     Dosage: 50 MILLIGRAM
     Route: 065
  61. INDOMETHACIN [Suspect]
     Active Substance: INDOMETHACIN
     Indication: Product used for unknown indication
     Dosage: UNK
     Route: 065
  62. INDOMETHACIN [Suspect]
     Active Substance: INDOMETHACIN
     Route: 065
  63. RIBAVIRIN [Suspect]
     Active Substance: RIBAVIRIN
     Indication: Product used for unknown indication
     Dosage: UNK
     Route: 065
  64. RIBAVIRIN [Suspect]
     Active Substance: RIBAVIRIN
     Route: 065
  65. MIRTAZAPINE [Suspect]
     Active Substance: MIRTAZAPINE
     Indication: Product used for unknown indication
     Dosage: UNK
     Route: 065
  66. MIRTAZAPINE [Suspect]
     Active Substance: MIRTAZAPINE
     Route: 065
  67. HYDROMORPHONE [Suspect]
     Active Substance: HYDROMORPHONE
     Indication: Product used for unknown indication
     Dosage: UNK
     Route: 065
  68. HYDROMORPHONE [Suspect]
     Active Substance: HYDROMORPHONE
     Route: 065
  69. NITROGLYCERIN [Suspect]
     Active Substance: NITROGLYCERIN
     Indication: Product used for unknown indication
     Dosage: UNK
     Route: 065
  70. NITROGLYCERIN [Suspect]
     Active Substance: NITROGLYCERIN
     Route: 065
  71. CELECOXIB [Suspect]
     Active Substance: CELECOXIB
     Indication: Product used for unknown indication
     Dosage: 100 MG, UNK
     Route: 065
  72. CELECOXIB [Suspect]
     Active Substance: CELECOXIB
     Dosage: 100 MILLIGRAM
     Route: 065
  73. DUTASTERIDE [Suspect]
     Active Substance: DUTASTERIDE
     Indication: Product used for unknown indication
     Dosage: UNK
     Route: 065
  74. DUTASTERIDE [Suspect]
     Active Substance: DUTASTERIDE
     Route: 065
  75. NORFLOXACIN [Suspect]
     Active Substance: NORFLOXACIN
     Indication: Product used for unknown indication
     Dosage: UNK
     Route: 065
  76. NORFLOXACIN [Suspect]
     Active Substance: NORFLOXACIN
     Route: 065
  77. TAMSULOSIN [Suspect]
     Active Substance: TAMSULOSIN
     Indication: Product used for unknown indication
     Dosage: UNK
     Route: 065
  78. TAMSULOSIN [Suspect]
     Active Substance: TAMSULOSIN
     Route: 065
  79. LETROZOLE [Suspect]
     Active Substance: LETROZOLE
     Indication: Product used for unknown indication
     Dosage: UNK
     Route: 065
  80. LETROZOLE [Suspect]
     Active Substance: LETROZOLE
     Route: 065
  81. HYDROCHLOROTHIAZIDE [Suspect]
     Active Substance: HYDROCHLOROTHIAZIDE
     Indication: Product used for unknown indication
     Dosage: UNK
     Route: 065
  82. HYDROCHLOROTHIAZIDE [Suspect]
     Active Substance: HYDROCHLOROTHIAZIDE
     Route: 065
  83. LEVOCETIRIZINE [Suspect]
     Active Substance: LEVOCETIRIZINE
     Indication: Product used for unknown indication
     Dosage: 5 MG, UNK
     Route: 065
  84. LEVOCETIRIZINE [Suspect]
     Active Substance: LEVOCETIRIZINE
     Dosage: 5 MILLIGRAM
     Route: 065
  85. SIMVASTATIN [Suspect]
     Active Substance: SIMVASTATIN
     Indication: Product used for unknown indication
     Dosage: UNK
     Route: 065
  86. SIMVASTATIN [Suspect]
     Active Substance: SIMVASTATIN
     Route: 065
  87. ANASTROZOLE [Suspect]
     Active Substance: ANASTROZOLE
     Indication: Product used for unknown indication
     Dosage: UNK
     Route: 065
  88. ANASTROZOLE [Suspect]
     Active Substance: ANASTROZOLE
     Route: 065
  89. CHOLECALCIFEROL [Suspect]
     Active Substance: CHOLECALCIFEROL
     Indication: Product used for unknown indication
     Dosage: 50 MG, UNK
     Route: 065
  90. CHOLECALCIFEROL [Suspect]
     Active Substance: CHOLECALCIFEROL
     Dosage: 50 MILLIGRAM
     Route: 065
  91. ETANERCEPT [Suspect]
     Active Substance: ETANERCEPT
     Indication: Product used for unknown indication
     Dosage: UNK
     Route: 065
  92. ETANERCEPT [Suspect]
     Active Substance: ETANERCEPT
     Route: 065
  93. DOCETAXEL [Suspect]
     Active Substance: DOCETAXEL
     Indication: Product used for unknown indication
     Dosage: UNK
     Route: 065
  94. DOCETAXEL [Suspect]
     Active Substance: DOCETAXEL
     Route: 065
  95. DILTIAZEM [Suspect]
     Active Substance: DILTIAZEM
     Indication: Product used for unknown indication
     Dosage: 120 MG, UNK
     Route: 065
  96. DILTIAZEM [Suspect]
     Active Substance: DILTIAZEM
     Dosage: 120 MILLIGRAM
     Route: 065
  97. ADALIMUMAB [Suspect]
     Active Substance: ADALIMUMAB
     Indication: Product used for unknown indication
     Dosage: UNK
     Route: 065
  98. ADALIMUMAB [Suspect]
     Active Substance: ADALIMUMAB
     Route: 065
  99. CILAZAPRIL ANHYDROUS [Suspect]
     Active Substance: CILAZAPRIL ANHYDROUS
     Indication: Product used for unknown indication
     Dosage: UNK
     Route: 065
  100. CILAZAPRIL ANHYDROUS [Suspect]
     Active Substance: CILAZAPRIL ANHYDROUS
     Route: 065
  101. LEDIPASVIR [Suspect]
     Active Substance: LEDIPASVIR
     Indication: Product used for unknown indication
     Dosage: UNK
     Route: 065
  102. LEDIPASVIR [Suspect]
     Active Substance: LEDIPASVIR
     Route: 065
  103. ESOMEPRAZOLE [Suspect]
     Active Substance: ESOMEPRAZOLE
     Indication: Product used for unknown indication
     Dosage: UNK
     Route: 065
  104. ESOMEPRAZOLE [Suspect]
     Active Substance: ESOMEPRAZOLE
     Route: 065
  105. ESCITALOPRAM [Suspect]
     Active Substance: ESCITALOPRAM OXALATE
     Indication: Product used for unknown indication
     Dosage: UNK
     Route: 065
  106. ESCITALOPRAM [Suspect]
     Active Substance: ESCITALOPRAM OXALATE
     Route: 065
  107. FLUVASTATIN [Suspect]
     Active Substance: FLUVASTATIN SODIUM
     Indication: Product used for unknown indication
     Dosage: UNK
     Route: 065
  108. FLUVASTATIN [Suspect]
     Active Substance: FLUVASTATIN SODIUM
     Route: 065
  109. VERAPAMIL [Suspect]
     Active Substance: VERAPAMIL HYDROCHLORIDE
     Indication: Product used for unknown indication
     Dosage: 120 MG, UNK
     Route: 065
  110. VERAPAMIL [Suspect]
     Active Substance: VERAPAMIL HYDROCHLORIDE
     Dosage: 120 MILLIGRAM
     Route: 065
  111. ESCHERICHIA COLI [Suspect]
     Active Substance: ESCHERICHIA COLI
     Indication: Product used for unknown indication
     Dosage: UNK
     Route: 065
  112. ESCHERICHIA COLI [Suspect]
     Active Substance: ESCHERICHIA COLI
     Route: 065
  113. SOFOSBUVIR [Suspect]
     Active Substance: SOFOSBUVIR
     Indication: Product used for unknown indication
     Dosage: UNK
     Route: 065
  114. SOFOSBUVIR [Suspect]
     Active Substance: SOFOSBUVIR
     Route: 065
  115. AGOMELATINE [Suspect]
     Active Substance: AGOMELATINE
     Indication: Product used for unknown indication
     Dosage: UNK
     Route: 065
  116. AGOMELATINE [Suspect]
     Active Substance: AGOMELATINE
     Route: 065
  117. ALENDRONIC ACID [Suspect]
     Active Substance: ALENDRONIC ACID
     Indication: Product used for unknown indication
     Dosage: UNK
     Route: 065
  118. ALENDRONIC ACID [Suspect]
     Active Substance: ALENDRONIC ACID
     Route: 065
  119. EZETIMIBE [Suspect]
     Active Substance: EZETIMIBE
     Indication: Product used for unknown indication
     Dosage: UNK
     Route: 065
  120. EZETIMIBE [Suspect]
     Active Substance: EZETIMIBE
     Route: 065
  121. POTASSIUM IODIDE [Suspect]
     Active Substance: POTASSIUM IODIDE
     Indication: Product used for unknown indication
     Dosage: UNK
     Route: 065
  122. POTASSIUM IODIDE [Suspect]
     Active Substance: POTASSIUM IODIDE
     Route: 065
  123. PENTOXIFYLLINE [Suspect]
     Active Substance: PENTOXIFYLLINE
     Indication: Product used for unknown indication
     Dosage: UNK
     Route: 065
  124. PENTOXIFYLLINE [Suspect]
     Active Substance: PENTOXIFYLLINE
     Route: 065
  125. PRAVASTATIN [Suspect]
     Active Substance: PRAVASTATIN
     Indication: Product used for unknown indication
     Dosage: UNK
     Route: 065
  126. PRAVASTATIN [Suspect]
     Active Substance: PRAVASTATIN
     Route: 065
  127. SODIUM PICOSULFATE [Suspect]
     Active Substance: SODIUM PICOSULFATE
     Indication: Product used for unknown indication
     Dosage: UNK
     Route: 065
  128. SODIUM PICOSULFATE [Suspect]
     Active Substance: SODIUM PICOSULFATE
     Route: 065
  129. ZOLEDRONIC ACID [Suspect]
     Active Substance: ZOLEDRONIC ACID
     Indication: Product used for unknown indication
     Dosage: UNK
     Route: 065
  130. ZOLEDRONIC ACID [Suspect]
     Active Substance: ZOLEDRONIC ACID
     Route: 065
  131. SERTRALINE [Suspect]
     Active Substance: SERTRALINE HYDROCHLORIDE
     Indication: Product used for unknown indication
     Dosage: UNK
     Route: 065
  132. SERTRALINE [Suspect]
     Active Substance: SERTRALINE HYDROCHLORIDE
     Route: 065
  133. PITAVASTATIN [Suspect]
     Active Substance: PITAVASTATIN
     Indication: Product used for unknown indication
     Dosage: UNK
     Route: 065
  134. PITAVASTATIN [Suspect]
     Active Substance: PITAVASTATIN
     Route: 065

REACTIONS (47)
  - Altered state of consciousness [Fatal]
  - Photophobia [Fatal]
  - Generalised oedema [Fatal]
  - Fatigue [Fatal]
  - Fall [Fatal]
  - Haematemesis [Fatal]
  - Eye pain [Fatal]
  - Asthenia [Fatal]
  - Head discomfort [Fatal]
  - Myalgia [Fatal]
  - Haemorrhagic stroke [Fatal]
  - Cardio-respiratory arrest [Fatal]
  - Cough [Fatal]
  - Sepsis [Fatal]
  - Tinnitus [Fatal]
  - Arthralgia [Fatal]
  - Pruritus [Fatal]
  - Diplopia [Fatal]
  - Blindness [Fatal]
  - Coma [Fatal]
  - Syncope [Fatal]
  - Ascites [Fatal]
  - Haematuria [Fatal]
  - Headache [Fatal]
  - Tachycardia [Fatal]
  - Blood pressure increased [Fatal]
  - Vision blurred [Fatal]
  - Presyncope [Fatal]
  - Malaise [Fatal]
  - Dizziness [Fatal]
  - Urinary tract disorder [Fatal]
  - Ocular discomfort [Fatal]
  - Amaurosis fugax [Fatal]
  - Dyspnoea [Fatal]
  - Chills [Fatal]
  - Decreased appetite [Fatal]
  - Vomiting [Fatal]
  - Diarrhoea [Fatal]
  - Somnolence [Fatal]
  - Insomnia [Fatal]
  - Abdominal pain upper [Fatal]
  - Pyrexia [Fatal]
  - Nausea [Fatal]
  - Abdominal pain [Fatal]
  - Drug interaction [Fatal]
  - Product use issue [Unknown]
  - Off label use [Unknown]
